FAERS Safety Report 4353767-5 (Version None)
Quarter: 2004Q2

REPORT INFORMATION
  Report Type: 
  Country: None (occurrence: None)
  Receive Date: 20040430
  Receipt Date: 20030701
  Transmission Date: 20050107
  Serious: Yes (Hospitalization)
  Sender: FDA-Public Use
  Company Number: KDL041551

PATIENT
  Age: 70 Year
  Sex: Female

DRUGS (6)
  1. EPOGEN [Suspect]
     Indication: ANAEMIA OF MALIGNANT DISEASE
     Dosage: WEEKLY
     Dates: start: 20030301, end: 20030601
  2. PACLITAXEL [Concomitant]
  3. CARBOPLATIN [Concomitant]
  4. SIMVASTATIN [Concomitant]
  5. CLOPIDOGREL BISULFATE [Concomitant]
  6. AMLODIPINE BESYLATE [Concomitant]

REACTIONS (4)
  - FATIGUE [None]
  - HYPERTENSION [None]
  - LETHARGY [None]
  - TRANSIENT ISCHAEMIC ATTACK [None]
